FAERS Safety Report 5400904-7 (Version None)
Quarter: 2007Q3

REPORT INFORMATION
  Report Type: 
  Country: None (occurrence: None)
  Receive Date: 20070730
  Receipt Date: 20060725
  Transmission Date: 20080115
  Serious: No
  Sender: FDA-Public Use
  Company Number: A0609867A

PATIENT
  Age: 2 Month
  Sex: Female

DRUGS (2)
  1. ZANTAC 150 [Suspect]
     Dosage: 15MG TWICE PER DAY
     Route: 048
     Dates: start: 20060512
  2. NO CONCURRENT MEDICATION [Concomitant]

REACTIONS (1)
  - CONSTIPATION [None]
